FAERS Safety Report 8844725 (Version 3)
Quarter: 2013Q4

REPORT INFORMATION
  Report Type: Spontaneous
  Country: US (occurrence: None)
  Receive Date: 20120426
  Receipt Date: 20131226
  Transmission Date: 20140711
  Serious: Yes (Other)
  Sender: FDA-Public Use
  Company Number: PHEH2012US003238

PATIENT
  Age: 57 Year
  Sex: Female
  Weight: 46.7 kg

DRUGS (5)
  1. GILENYA [Suspect]
     Indication: RELAPSING-REMITTING MULTIPLE SCLEROSIS
     Route: 048
     Dates: start: 20111003
  2. BACLOFEN (BACLOFEN) [Concomitant]
  3. VESICARE (SOLIFENACIN) [Concomitant]
  4. FAMPRIDINE  (FAMPRIDINE) [Concomitant]
  5. DESMOPRESSIN (DESMOPRESSIN) [Concomitant]

REACTIONS (5)
  - Blood pressure increased [None]
  - Lymphocyte count decreased [None]
  - Inappropriate schedule of drug administration [None]
  - Hypertension [None]
  - Dizziness [None]
